FAERS Safety Report 16703611 (Version 8)
Quarter: 2020Q4

REPORT INFORMATION
  Report Type: Report from Study
  Country: US (occurrence: US)
  Receive Date: 20190814
  Receipt Date: 20201121
  Transmission Date: 20210113
  Serious: No
  Sender: FDA-Public Use
  Company Number: PHEH2019US032962

PATIENT
  Age: 76 Year
  Sex: Male

DRUGS (2)
  1. COSENTYX [Suspect]
     Active Substance: SECUKINUMAB
     Indication: PSORIASIS
     Dosage: 2 DF (150 MG X 2), QMO
     Route: 058
  2. COSENTYX [Suspect]
     Active Substance: SECUKINUMAB
     Indication: PSORIASIS
     Dosage: 300 MG, QMO
     Route: 058
     Dates: start: 20180711

REACTIONS (10)
  - Accidental exposure to product [Unknown]
  - Pain [Unknown]
  - Therapeutic response shortened [Unknown]
  - Drug ineffective [Not Recovered/Not Resolved]
  - Device issue [Unknown]
  - Pain in extremity [Unknown]
  - Arthritis [Not Recovered/Not Resolved]
  - Blood pressure decreased [Unknown]
  - Incorrect dose administered [Unknown]
  - Gait disturbance [Unknown]

NARRATIVE: CASE EVENT DATE: 20200520
